FAERS Safety Report 9166341 (Version 1)
Quarter: 2013Q1

REPORT INFORMATION
  Report Type: Spontaneous
  Country: FR (occurrence: FR)
  Receive Date: 20130315
  Receipt Date: 20130315
  Transmission Date: 20140127
  Serious: Yes (Other)
  Sender: FDA-Public Use
  Company Number: FR-009507513-1303FRA003577

PATIENT
  Age: 14 Year
  Sex: Female

DRUGS (4)
  1. AERIUS [Suspect]
     Indication: ASTHMA
     Dosage: 5 MG, QD
     Route: 048
     Dates: start: 20130125, end: 20130127
  2. SINGULAIR [Suspect]
     Indication: ASTHMA
     Dosage: 10 MG, QD
     Route: 048
     Dates: start: 20130125, end: 20130127
  3. INNOVAIR [Suspect]
     Indication: ASTHMA
     Dosage: 1 DF, UNK
     Route: 055
     Dates: start: 20130125, end: 20130127
  4. CARBOCYSTEINE [Suspect]
     Indication: ASTHMA
     Dosage: 1 DF, UNK
     Dates: start: 20130127, end: 20130127

REACTIONS (2)
  - Malaise [Recovered/Resolved]
  - Loss of consciousness [Recovered/Resolved]
